FAERS Safety Report 6096202-1 (Version None)
Quarter: 2009Q1

REPORT INFORMATION
  Report Type: 
  Country: None (occurrence: None)
  Receive Date: 20090227
  Receipt Date: 20081029
  Transmission Date: 20090719
  Serious: No
  Sender: FDA-Public Use
  Company Number: A0750061A

PATIENT
  Age: 4 Year
  Sex: Female
  Weight: 14 kg

DRUGS (3)
  1. LAMOTRIGINE [Suspect]
     Route: 048
     Dates: start: 20080908
  2. KEPPRA [Concomitant]
  3. CLONAZEPAM [Concomitant]

REACTIONS (4)
  - CHEILITIS [None]
  - MOUTH ULCERATION [None]
  - PYREXIA [None]
  - RESPIRATORY DISORDER [None]
